FAERS Safety Report 8383373 (Version 3)
Quarter: 2014Q1

REPORT INFORMATION
  Report Type: Spontaneous
  Country: US (occurrence: US)
  Receive Date: 20120201
  Receipt Date: 20140108
  Transmission Date: 20141002
  Serious: Yes (Hospitalization, Congenital Anomaly)
  Sender: FDA-Public Use
  Company Number: US-GLAXOSMITHKLINE-A0963819A

PATIENT
  Age: 0 Day
  Sex: Male

DRUGS (6)
  1. PAXIL [Suspect]
     Indication: BIPOLAR DISORDER
     Route: 064
  2. PERPHENAZINE [Concomitant]
  3. CLARITIN [Concomitant]
  4. PRILOSEC [Concomitant]
  5. TETRACYCLINE [Concomitant]
  6. XANAX [Concomitant]

REACTIONS (7)
  - Congenital tricuspid valve atresia [Unknown]
  - Right ventricular hypertrophy [Unknown]
  - Cardiac murmur [Unknown]
  - Alopecia [Unknown]
  - Sick sinus syndrome [Unknown]
  - Atrial septal defect [Unknown]
  - Foetal exposure during pregnancy [Unknown]
